FAERS Safety Report 12492246 (Version 1)
Quarter: 2016Q2

REPORT INFORMATION
  Report Type: Spontaneous
  Country: US (occurrence: None)
  Receive Date: 20160622
  Receipt Date: 20160622
  Transmission Date: 20160815
  Serious: Yes (Hospitalization)
  Sender: FDA-Public Use
  Company Number: None

PATIENT
  Age: 70 Year
  Sex: Male
  Weight: 65.1 kg

DRUGS (1)
  1. VALACYCLOVIR [Suspect]
     Active Substance: VALACYCLOVIR HYDROCHLORIDE
     Indication: HERPES ZOSTER
     Route: 048
     Dates: start: 20160603, end: 20160604

REACTIONS (6)
  - Dysarthria [None]
  - Muscle twitching [None]
  - Cerebral small vessel ischaemic disease [None]
  - Confusional state [None]
  - Mental status changes [None]
  - Hallucination [None]

NARRATIVE: CASE EVENT DATE: 20160604
